FAERS Safety Report 20807316 (Version 2)
Quarter: 2022Q2

REPORT INFORMATION
  Report Type: Report from Study
  Country: US (occurrence: None)
  Receive Date: 20220510
  Receipt Date: 20220512
  Transmission Date: 20220721
  Serious: Yes (Hospitalization, Other)
  Sender: FDA-Public Use
  Company Number: US-ROCHE-2981753

PATIENT
  Age: 75 Year
  Sex: Female
  Weight: 62 kg

DRUGS (4)
  1. ATEZOLIZUMAB [Suspect]
     Active Substance: ATEZOLIZUMAB
     Indication: Breast cancer metastatic
     Dosage: ON DAY 22 OF CYCLE 1 AND DAYS 1 AND 22 OF SUBSEQUENT CYCLES
     Route: 041
     Dates: start: 20200618
  2. PERTUZUMAB [Suspect]
     Active Substance: PERTUZUMAB
     Indication: HER2 positive breast cancer
     Dosage: TOTAL DOSE 840 MG?ON DAYS 1 AND 22
     Route: 042
     Dates: start: 20200618
  3. TRASTUZUMAB [Suspect]
     Active Substance: TRASTUZUMAB
     Indication: HER2 positive breast cancer
     Dosage: 736 MG TOTAL DOSE?ON DAYS 1 AND 22
     Route: 041
     Dates: start: 20200618
  4. PACLITAXEL [Suspect]
     Active Substance: PACLITAXEL
     Indication: HER2 positive breast cancer
     Dosage: ON DAYS 1, 8, 15, 22, 29, AND 36
     Route: 042
     Dates: start: 20200618, end: 20201127

REACTIONS (4)
  - Ophthalmic migraine [Recovered/Resolved]
  - Presyncope [Recovered/Resolved]
  - Troponin T increased [Recovered/Resolved]
  - Hyponatraemia [Unknown]

NARRATIVE: CASE EVENT DATE: 20200710
